FAERS Safety Report 16793631 (Version 1)
Quarter: 2019Q3

REPORT INFORMATION
  Report Type: Spontaneous
  Country: CH (occurrence: CH)
  Receive Date: 20190911
  Receipt Date: 20190911
  Transmission Date: 20191005
  Serious: Yes (Other)
  Sender: FDA-Public Use
  Company Number: CH-ADIENNEP-2019AD000422

PATIENT
  Age: 37 Year
  Sex: Female

DRUGS (4)
  1. THIOTEPA. [Suspect]
     Active Substance: THIOTEPA
     Indication: AUTOLOGOUS HAEMATOPOIETIC STEM CELL TRANSPLANT
  2. METHOTREXATE. [Suspect]
     Active Substance: METHOTREXATE
     Indication: AUTOLOGOUS HAEMATOPOIETIC STEM CELL TRANSPLANT
  3. RITUXIMAB. [Suspect]
     Active Substance: RITUXIMAB
     Indication: AUTOLOGOUS HAEMATOPOIETIC STEM CELL TRANSPLANT
  4. CYTARABINE. [Suspect]
     Active Substance: CYTARABINE
     Indication: AUTOLOGOUS HAEMATOPOIETIC STEM CELL TRANSPLANT

REACTIONS (2)
  - Oral candidiasis [Unknown]
  - Febrile neutropenia [Unknown]
